FAERS Safety Report 8956044 (Version 1)
Quarter: 2012Q4

REPORT INFORMATION
  Report Type: Report from Study
  Country: US (occurrence: US)
  Receive Date: 20121210
  Receipt Date: 20121210
  Transmission Date: 20130627
  Serious: Yes (Other)
  Sender: FDA-Public Use
  Company Number: US-TEVA-374626USA

PATIENT
  Sex: Female
  Weight: 101.8 kg

DRUGS (8)
  1. METHOTREXATE [Suspect]
     Indication: RHEUMATOID ARTHRITIS
     Dosage: 1.4286 Milligram Daily;
     Route: 042
     Dates: start: 20070305, end: 20090112
  2. OCRELIZUMAB [Suspect]
     Indication: RHEUMATOID ARTHRITIS
     Dosage: 33.3333 Milligram Daily; DAY 1 AND DAY 15 FORM
     Route: 042
     Dates: start: 20070618, end: 20071217
  3. OCRELIZUMAB [Suspect]
     Dosage: for 12 weeks
     Dates: start: 20080519, end: 20090126
  4. FOLIC ACID [Concomitant]
     Dates: start: 20070305, end: 20090112
  5. TYLENOL [Concomitant]
     Dates: start: 20070905
  6. PROPRANOLOL [Concomitant]
  7. OXYCODONE [Concomitant]
  8. MULTIVITAMINS [Concomitant]

REACTIONS (1)
  - Liposarcoma [Not Recovered/Not Resolved]
